APPROVED DRUG PRODUCT: LUPKYNIS
Active Ingredient: VOCLOSPORIN
Strength: 7.9MG
Dosage Form/Route: CAPSULE;ORAL
Application: N213716 | Product #001
Applicant: AURINIA PHARMACEUTICALS INC
Approved: Jan 22, 2021 | RLD: Yes | RS: Yes | Type: RX

PATENTS:
Patent 11622991 | Expires: Dec 7, 2037
Patent 7332472 | Expires: Oct 17, 2027
Patent 10286036 | Expires: Dec 7, 2037

EXCLUSIVITY:
Code: NCE | Date: Jan 22, 2026